FAERS Safety Report 12583604 (Version 11)
Quarter: 2020Q4

REPORT INFORMATION
  Report Type: Report from Study
  Country: TR (occurrence: TR)
  Receive Date: 20160722
  Receipt Date: 20201120
  Transmission Date: 20210113
  Serious: Yes (Death)
  Sender: FDA-Public Use
  Company Number: TR-PFIZER INC-2016352203

PATIENT
  Age: 74 Year
  Sex: Male
  Weight: 81 kg

DRUGS (6)
  1. FOLIC ACID. [Concomitant]
     Active Substance: FOLIC ACID
     Indication: RHEUMATOID ARTHRITIS
     Dosage: 5 MG, WEEKLY
     Route: 048
     Dates: start: 20121205, end: 20160429
  2. METHOTREXATE. [Concomitant]
     Active Substance: METHOTREXATE
     Indication: RHEUMATOID ARTHRITIS
     Dosage: 15 MG, WEEKLY
     Route: 048
     Dates: start: 20151205, end: 20160429
  3. PERINDOPRIL [Concomitant]
     Active Substance: PERINDOPRIL
     Indication: HYPERTENSION
     Dosage: 5 MG, DAILY
     Route: 048
     Dates: start: 2012, end: 20160429
  4. TOFACITINIB CITRATE [Suspect]
     Active Substance: TOFACITINIB CITRATE
     Indication: RHEUMATOID ARTHRITIS
     Dosage: 10 MG, 2X/DAY (5 MG, 2X2)
     Route: 048
     Dates: start: 20151220, end: 20160429
  5. LANSOPRAZOL [Concomitant]
     Active Substance: LANSOPRAZOLE
     Indication: PROPHYLAXIS
     Dosage: 30 MG, DAILY
     Route: 048
     Dates: start: 20151222, end: 20160429
  6. PREDNISOLONE. [Concomitant]
     Active Substance: PREDNISOLONE
     Indication: RHEUMATOID ARTHRITIS
     Dosage: 5 MG, 1X/DAY
     Route: 048
     Dates: start: 2012, end: 20160429

REACTIONS (1)
  - Death [Fatal]

NARRATIVE: CASE EVENT DATE: 20160429
